FAERS Safety Report 18613920 (Version 1)
Quarter: 2020Q4

REPORT INFORMATION
  Report Type: Report from Study
  Country: US (occurrence: US)
  Receive Date: 20201214
  Receipt Date: 20201214
  Transmission Date: 20210114
  Serious: Yes (Death, Hospitalization)
  Sender: FDA-Public Use
  Company Number: US-BAUSCH-BL-2020-016697

PATIENT
  Age: 70 Year
  Sex: Female

DRUGS (3)
  1. XIFAXAN [Suspect]
     Active Substance: RIFAXIMIN
     Indication: HEPATIC CIRRHOSIS
     Route: 048
     Dates: end: 2020
  2. LACTULOSE. [Concomitant]
     Active Substance: LACTULOSE
     Indication: PRODUCT USED FOR UNKNOWN INDICATION
  3. XIFAXAN [Suspect]
     Active Substance: RIFAXIMIN
     Indication: HEPATIC ENCEPHALOPATHY

REACTIONS (6)
  - Inability to afford medication [Unknown]
  - Hepatic encephalopathy [Unknown]
  - Death [Fatal]
  - Insurance issue [Unknown]
  - Disease recurrence [Unknown]
  - Therapy interrupted [Unknown]

NARRATIVE: CASE EVENT DATE: 2020
